FAERS Safety Report 9716299 (Version 1)
Quarter: 2013Q4

REPORT INFORMATION
  Report Type: Spontaneous
  Country: US (occurrence: None)
  Receive Date: 20131126
  Receipt Date: 20131126
  Transmission Date: 20140711
  Serious: No
  Sender: FDA-Public Use
  Company Number: None

PATIENT
  Age: 28 Year
  Sex: Female

DRUGS (6)
  1. NUVARING [Suspect]
     Indication: ENDOMETRIOSIS
  2. NUVARING [Suspect]
     Indication: OVARIAN CYST
  3. LYRICA [Concomitant]
  4. LAMICTAL [Concomitant]
  5. TRAZODONE [Concomitant]
  6. SETRALINE [Concomitant]

REACTIONS (3)
  - Mood swings [None]
  - Migraine [None]
  - Nausea [None]
